FAERS Safety Report 9538841 (Version 1)
Quarter: 2013Q2

REPORT INFORMATION
  Report Type: Spontaneous
  Country: US (occurrence: None)
  Receive Date: 20130517
  Receipt Date: 20130517
  Transmission Date: 20140414
  Serious: No
  Sender: FDA-Public Use
  Company Number: 1000042523

PATIENT
  Age: 69 Year
  Sex: Female

DRUGS (3)
  1. VIIBRYD (VILAZODONE HYDROCHLORIDE) (10 MILLIGRAM, TABLETS) [Suspect]
     Indication: DEPRESSION
     Route: 048
     Dates: start: 20130131
  2. XANAX [Concomitant]
  3. ATENOLOL (ATENOLOL) (ATENOLOL) [Concomitant]

REACTIONS (5)
  - Diarrhoea [None]
  - Abdominal pain [None]
  - Irritability [None]
  - Balance disorder [None]
  - Headache [None]
